FAERS Safety Report 6355367-4 (Version None)
Quarter: 2009Q3

REPORT INFORMATION
  Report Type: 
  Country: None (occurrence: None)
  Receive Date: 20090914
  Receipt Date: 20090904
  Transmission Date: 20100115
  Serious: No
  Sender: FDA-Public Use
  Company Number: US-B.I. PHARMACEUTICALS,INC./RIDGEFIELD-2009-BP-10473BP

PATIENT

DRUGS (3)
  1. VIRAMUNE [Suspect]
  2. ZIAGEN [Suspect]
  3. VIDEX [Suspect]

REACTIONS (2)
  - LIPODYSTROPHY ACQUIRED [None]
  - NEUROPATHY PERIPHERAL [None]
